FAERS Safety Report 21688706 (Version 1)
Quarter: 2022Q4

REPORT INFORMATION
  Report Type: Spontaneous
  Country: PL (occurrence: PL)
  Receive Date: 20221206
  Receipt Date: 20221206
  Transmission Date: 20230113
  Serious: Yes (Hospitalization)
  Sender: FDA-Public Use
  Company Number: PL-BoehringerIngelheim-2022-BI-205327

PATIENT
  Age: 75 Year
  Sex: Male

DRUGS (6)
  1. EMPAGLIFLOZIN [Suspect]
     Active Substance: EMPAGLIFLOZIN
     Indication: Cardiac failure
  2. TORSEMIDE [Concomitant]
     Active Substance: TORSEMIDE
     Indication: Product used for unknown indication
     Dates: start: 202204
  3. TORSEMIDE [Concomitant]
     Active Substance: TORSEMIDE
     Dates: start: 202206
  4. telmisartan + amlodipine [Concomitant]
     Indication: Product used for unknown indication
     Dosage: TELMISARTAN 80MG + AMLODIPINE 10MG
     Dates: start: 202204
  5. APIXABAN [Concomitant]
     Active Substance: APIXABAN
     Indication: Product used for unknown indication
     Dosage: 2X5MG
     Dates: start: 202204
  6. AMIODARONE [Concomitant]
     Active Substance: AMIODARONE
     Indication: Product used for unknown indication
     Dates: start: 202204

REACTIONS (1)
  - Atrioventricular block [Unknown]

NARRATIVE: CASE EVENT DATE: 20220601
